FAERS Safety Report 5468140-6 (Version None)
Quarter: 2007Q3

REPORT INFORMATION
  Report Type: 
  Country: None (occurrence: None)
  Receive Date: 20070924
  Receipt Date: 20070914
  Transmission Date: 20080115
  Serious: Yes (Disabling)
  Sender: FDA-Public Use
  Company Number: OSCN-NO-0709S-0359

PATIENT
  Age: 60 Year
  Sex: Male
  Weight: 60.5 kg

DRUGS (1)
  1. OMNISCAN [Suspect]
     Indication: DRUG USE FOR UNKNOWN INDICATION
     Dosage: 50 ML, SINGLE DOSE, I.V.
     Route: 042
     Dates: start: 20040728, end: 20040728

REACTIONS (4)
  - DIALYSIS [None]
  - GRANULOMA SKIN [None]
  - NEPHROGENIC SYSTEMIC FIBROSIS [None]
  - SKIN INFLAMMATION [None]
